FAERS Safety Report 4620191-7 (Version None)
Quarter: 2005Q1

REPORT INFORMATION
  Report Type: 
  Country: None (occurrence: None)
  Receive Date: 20050321
  Receipt Date: 20050321
  Transmission Date: 20050727
  Serious: No
  Sender: FDA-Public Use
  Company Number: None

PATIENT
  Age: 61 Year
  Sex: Male
  Weight: 79 kg

DRUGS (15)
  1. XIGRIS [Suspect]
     Indication: SEPTIC SHOCK
     Dosage: 9.5 ML    HOUR    INTRAVENOU
     Route: 042
     Dates: start: 20050304, end: 20050304
  2. AMIODARONE [Concomitant]
  3. BACITRACIN [Concomitant]
  4. DIGOXIN [Concomitant]
  5. ATROVENT [Concomitant]
  6. XOPENEX [Concomitant]
  7. TERBINAFINE HCL [Concomitant]
  8. PEPCID [Concomitant]
  9. HYDROCORTIS [Concomitant]
  10. FLAGYL [Concomitant]
  11. PHENYLEPHRINE [Concomitant]
  12. PROPOFOL [Concomitant]
  13. NIMBEX [Concomitant]
  14. LEVOPHED [Concomitant]
  15. SODIUM BICARBONATE [Concomitant]

REACTIONS (1)
  - GASTROINTESTINAL HAEMORRHAGE [None]
